FAERS Safety Report 10407066 (Version 1)
Quarter: 2014Q3

REPORT INFORMATION
  Report Type: Spontaneous
  Country: US (occurrence: None)
  Receive Date: 20140822
  Receipt Date: 20140822
  Transmission Date: 20150326
  Serious: Yes (Other)
  Sender: FDA-Public Use
  Company Number: None

PATIENT
  Age: 40 Year
  Sex: Female
  Weight: 70.31 kg

DRUGS (1)
  1. MONTELUKAST 10 MG [Suspect]
     Active Substance: MONTELUKAST SODIUM
     Indication: ASTHMA PROPHYLAXIS
     Dosage: 1 PILL DAILY ONCE DAILY TAKEN BY MOUTH
     Route: 048

REACTIONS (3)
  - Depressed mood [None]
  - Affective disorder [None]
  - Fear [None]

NARRATIVE: CASE EVENT DATE: 20140821
